FAERS Safety Report 7524888-0 (Version None)
Quarter: 2011Q2

REPORT INFORMATION
  Report Type: 
  Country: None (occurrence: None)
  Receive Date: 20110606
  Receipt Date: 20110525
  Transmission Date: 20111010
  Serious: Yes (Other)
  Sender: FDA-Public Use
  Company Number: GB-RANBAXY-2011R1-44859

PATIENT
  Sex: Male
  Weight: 101 kg

DRUGS (15)
  1. BISOPROLOL FUMARATE [Suspect]
     Indication: MYOCARDIAL ISCHAEMIA
     Dosage: 2.5 MG, QD
     Route: 048
     Dates: start: 20081101, end: 20100801
  2. RAMIPRIL [Suspect]
     Indication: CARDIAC DISORDER
     Dosage: 2.5 MG, QD
     Route: 065
  3. PERINDOPRIL ERBUMINE [Concomitant]
     Indication: MYOCARDIAL ISCHAEMIA
     Dosage: 5 MG, UNK
     Route: 048
     Dates: start: 20090601
  4. HYDROMOL CREAM [Concomitant]
     Indication: PSORIASIS
     Dosage: UNK
     Route: 065
  5. ACETAMINOPHEN [Concomitant]
     Indication: PAIN
     Dosage: 500 MG, UNK
     Route: 065
  6. ROSUVASTATIN [Concomitant]
     Indication: PRODUCT USED FOR UNKNOWN INDICATION
     Dosage: 10 MG, QD
     Route: 065
  7. TRAMADOL HCL [Concomitant]
     Indication: PAIN
     Dosage: 100 MG, UNK
     Route: 065
  8. NEBIVOLOL HCL [Concomitant]
     Indication: PRODUCT USED FOR UNKNOWN INDICATION
     Dosage: 2.5 MG, UNK
     Route: 065
  9. MEPERIDINE HCL [Concomitant]
     Indication: PAIN
     Dosage: 100 MG, UNK
     Route: 065
  10. BISOPROLOL FUMARATE [Suspect]
     Indication: ACUTE MYOCARDIAL INFARCTION
  11. DERMOVATE [Concomitant]
     Indication: PSORIASIS
     Dosage: UNK
     Route: 065
  12. IBUPROFEN [Concomitant]
     Indication: PAIN
     Dosage: 600 MG, UNK
     Route: 065
  13. PEPPERMINT OIL [Concomitant]
     Indication: PRODUCT USED FOR UNKNOWN INDICATION
     Dosage: UNK
     Route: 065
  14. ASPIRIN [Concomitant]
     Indication: MYOCARDIAL ISCHAEMIA
     Dosage: 75 MG, QD
     Route: 048
     Dates: start: 20081101
  15. CLOPIDOGREL [Concomitant]
     Indication: CARDIAC DISORDER
     Dosage: 75 MG, UNK
     Route: 065

REACTIONS (5)
  - JOINT EFFUSION [None]
  - OSTEOARTHRITIS [None]
  - PSORIASIS [None]
  - LIGAMENT INJURY [None]
  - FALL [None]
